FAERS Safety Report 24966264 (Version 1)
Quarter: 2025Q1

REPORT INFORMATION
  Report Type: Spontaneous
  Country: FR (occurrence: FR)
  Receive Date: 20250213
  Receipt Date: 20250213
  Transmission Date: 20250409
  Serious: Yes (Other)
  Sender: MYLAN
  Company Number: None

PATIENT
  Age: 42 Year
  Sex: Female
  Weight: 100 kg

DRUGS (7)
  1. XANAX [Suspect]
     Active Substance: ALPRAZOLAM
     Indication: Anxiety
     Route: 048
     Dates: start: 20250102, end: 20250102
  2. XANAX [Suspect]
     Active Substance: ALPRAZOLAM
     Route: 048
     Dates: start: 20250103, end: 20250103
  3. BROMAZEPAM [Suspect]
     Active Substance: BROMAZEPAM
     Indication: Anxiety
     Route: 048
     Dates: start: 20250102, end: 20250102
  4. BROMAZEPAM [Suspect]
     Active Substance: BROMAZEPAM
     Route: 048
     Dates: start: 20250103, end: 20250103
  5. PRAZEPAM [Suspect]
     Active Substance: PRAZEPAM
     Indication: Anxiety
     Route: 048
     Dates: start: 20250102, end: 20250102
  6. DOXYLAMINE SUCCINATE [Suspect]
     Active Substance: DOXYLAMINE SUCCINATE
     Indication: Anxiety
     Route: 048
     Dates: start: 20250102, end: 20250102
  7. DOXYLAMINE SUCCINATE [Suspect]
     Active Substance: DOXYLAMINE SUCCINATE
     Route: 048
     Dates: start: 20250103, end: 20250103

REACTIONS (3)
  - Drug abuse [Recovered/Resolved]
  - Palpitations [Not Recovered/Not Resolved]
  - Somnolence [Not Recovered/Not Resolved]

NARRATIVE: CASE EVENT DATE: 20250103
